FAERS Safety Report 8964610 (Version 2)
Quarter: 2013Q2

REPORT INFORMATION
  Report Type: Report from Study
  Country: JP (occurrence: JP)
  Receive Date: 20121214
  Receipt Date: 20130416
  Transmission Date: 20140414
  Serious: Yes (Other)
  Sender: FDA-Public Use
  Company Number: JP-CELGENEUS-087-21880-10122465

PATIENT
  Age: 65 Year
  Sex: Male

DRUGS (26)
  1. REVLIMID [Suspect]
     Indication: PLASMA CELL MYELOMA
     Dosage: 10 MILLIGRAM
     Route: 048
     Dates: start: 20100803, end: 20100823
  2. REVLIMID [Suspect]
     Dosage: 10 MILLIGRAM
     Route: 048
     Dates: start: 20100831, end: 20100917
  3. REVLIMID [Suspect]
     Dosage: 10 MILLIGRAM
     Route: 048
     Dates: start: 20101022, end: 20101111
  4. REVLIMID [Suspect]
     Dosage: 10 MILLIGRAM
     Route: 048
     Dates: start: 20101129, end: 20101212
  5. LENADEX [Suspect]
     Indication: PLASMA CELL MYELOMA
     Dosage: 20 MILLIGRAM
     Route: 048
     Dates: start: 20100803, end: 20100806
  6. LENADEX [Suspect]
     Dosage: 20 MILLIGRAM
     Route: 048
     Dates: start: 20100811, end: 20100814
  7. LENADEX [Suspect]
     Dosage: 20 MILLIGRAM
     Route: 048
     Dates: start: 20100819, end: 20100822
  8. LENADEX [Suspect]
     Dosage: 20 MILLIGRAM
     Route: 048
     Dates: start: 20100831, end: 20100903
  9. LENADEX [Suspect]
     Dosage: 20 MILLIGRAM
     Route: 048
     Dates: start: 20100908, end: 20100911
  10. PREDONINE [Concomitant]
     Indication: PLASMA CELL MYELOMA
     Dosage: 10 MILLIGRAM
     Route: 048
     Dates: start: 20101015, end: 20101128
  11. PREDONINE [Concomitant]
     Dosage: 10 MILLIGRAM
     Route: 048
     Dates: start: 20101129, end: 20110119
  12. VENILON [Concomitant]
     Indication: ILL-DEFINED DISORDER
     Dosage: 10 GRAM
     Route: 041
     Dates: start: 20100810, end: 20100810
  13. VENILON [Concomitant]
     Dosage: 10 GRAM
     Route: 041
     Dates: start: 20100901, end: 20100901
  14. VENILON [Concomitant]
     Dosage: 10 GRAM
     Route: 041
     Dates: start: 20101206, end: 20101206
  15. GASMOTIN [Concomitant]
     Indication: PRODUCT USED FOR UNKNOWN INDICATION
     Dosage: 15 MILLIGRAM
     Route: 048
     Dates: start: 20101008, end: 20110119
  16. PRIMPERAN [Concomitant]
     Indication: PRODUCT USED FOR UNKNOWN INDICATION
     Dosage: 15 MILLIGRAM
     Route: 048
     Dates: start: 20101015, end: 20101021
  17. ZYLORIC [Concomitant]
     Indication: PRODUCT USED FOR UNKNOWN INDICATION
     Dosage: 300 MILLIGRAM
     Route: 048
     Dates: start: 20101019, end: 20101128
  18. ZYLORIC [Concomitant]
     Dosage: 200 MILLIGRAM
     Route: 048
     Dates: start: 20101129, end: 20110119
  19. PARIET [Concomitant]
     Indication: PROPHYLAXIS
     Dosage: 10 MILLIGRAM
     Route: 048
     Dates: start: 20100803, end: 20110119
  20. BAKTAR [Concomitant]
     Indication: PROPHYLAXIS
     Dosage: 480 MILLIGRAM
     Route: 048
     Dates: start: 20100803, end: 20110119
  21. URALYT [Concomitant]
     Indication: PRODUCT USED FOR UNKNOWN INDICATION
     Dosage: 3 TABLET
     Route: 048
     Dates: start: 20101019, end: 20101022
  22. URALYT [Concomitant]
     Dosage: 3 TABLET
     Route: 048
     Dates: start: 20110104, end: 20110119
  23. TALION [Concomitant]
     Indication: PROPHYLAXIS
     Dosage: 20 MILLIGRAM
     Route: 048
     Dates: start: 20101206, end: 20110119
  24. ITRIZOLE [Concomitant]
     Indication: PROPHYLAXIS
     Dosage: 200 MILLIGRAM
     Route: 048
     Dates: start: 20101210, end: 20101223
  25. CALONAL [Concomitant]
     Indication: PROPHYLAXIS
     Dosage: 400 MILLIGRAM
     Route: 048
     Dates: start: 20110117, end: 20110119
  26. MYSLEE [Concomitant]
     Indication: PROPHYLAXIS
     Dosage: 5 MILLIGRAM
     Route: 048
     Dates: start: 20110117, end: 20110119

REACTIONS (10)
  - Neutrophil count decreased [Recovered/Resolved]
  - Platelet count decreased [Recovered/Resolved]
  - Neutrophil count decreased [Not Recovered/Not Resolved]
  - Platelet count decreased [Unknown]
  - Muscle spasms [Recovered/Resolved]
  - Dysphonia [Recovered/Resolved]
  - Herpes zoster [Recovered/Resolved]
  - Muscle spasms [Recovered/Resolved]
  - Eyelid oedema [Recovered/Resolved]
  - Herpes zoster [Not Recovered/Not Resolved]
